FAERS Safety Report 5090535-3 (Version None)
Quarter: 2006Q3

REPORT INFORMATION
  Report Type: 
  Country: None (occurrence: None)
  Receive Date: 20060828
  Receipt Date: 20060530
  Transmission Date: 20061208
  Serious: Yes (Hospitalization)
  Sender: FDA-Public Use
  Company Number: US-GLAXOSMITHKLINE-A0607249A

PATIENT
  Age: 57 Year
  Sex: Female

DRUGS (11)
  1. WELLBUTRIN XL [Suspect]
     Indication: DEPRESSION
     Route: 048
  2. CELEXA [Concomitant]
  3. LORAZEPAM [Concomitant]
  4. TOPAMAX [Concomitant]
  5. NEXIUM [Concomitant]
  6. FEMHRT [Concomitant]
  7. BENTYL [Concomitant]
  8. SINGULAIR [Concomitant]
  9. FLOVENT [Concomitant]
  10. ALBUTEROL [Concomitant]
  11. NASACORT [Concomitant]

REACTIONS (5)
  - DEPRESSION [None]
  - DRUG INEFFECTIVE [None]
  - HEADACHE [None]
  - MUSCULAR WEAKNESS [None]
  - NAUSEA [None]
